FAERS Safety Report 9830075 (Version 3)
Quarter: 2014Q2

REPORT INFORMATION
  Report Type: Report from Study
  Country: DE (occurrence: DE)
  Receive Date: 20140120
  Receipt Date: 20140417
  Transmission Date: 20141212
  Serious: Yes (Other)
  Sender: FDA-Public Use
  Company Number: DE-SA-2014SA005370

PATIENT
  Age: 74 Year
  Sex: Male
  Weight: 85.7 kg

DRUGS (12)
  1. JEVTANA [Suspect]
     Indication: HORMONE-REFRACTORY PROSTATE CANCER
     Route: 051
     Dates: start: 20131212, end: 20131212
  2. NEULASTA [Concomitant]
  3. ABARELIX [Concomitant]
  4. KEVATRIL [Concomitant]
  5. VERGENTAN [Concomitant]
  6. TAVEGIL [Concomitant]
  7. RANITIDINE [Concomitant]
  8. METOCLOPRAMIDE [Concomitant]
  9. PAMIDRONATE DISODIUM [Concomitant]
  10. ANALGESICS [Concomitant]
  11. DEXAMETHASONE [Concomitant]
  12. PREDNISOLON [Concomitant]

REACTIONS (4)
  - Fatigue [Not Recovered/Not Resolved]
  - Renal haemorrhage [Recovered/Resolved]
  - Platelet count decreased [Not Recovered/Not Resolved]
  - Abdominal pain [Not Recovered/Not Resolved]
